FAERS Safety Report 5717587-9 (Version None)
Quarter: 2008Q2

REPORT INFORMATION
  Report Type: 
  Country: None (occurrence: None)
  Receive Date: 20080425
  Receipt Date: 20080422
  Transmission Date: 20081010
  Serious: Yes (Death)
  Sender: FDA-Public Use
  Company Number: PHRM2008FR01355

PATIENT
  Age: 41 Year
  Sex: Male

DRUGS (4)
  1. TEGRETOL [Suspect]
     Indication: EPILEPSY
     Dosage: 200 MG, TID
     Route: 065
  2. CARBAMAZEPINE [Suspect]
     Indication: EPILEPSY
     Dosage: 200 MG, TID
     Route: 065
  3. URBANYL [Suspect]
     Dosage: 20 MG/DAY
     Route: 065
  4. ESOMEPRAZOLE [Suspect]
     Route: 065

REACTIONS (23)
  - ANTICONVULSANT DRUG LEVEL DECREASED [None]
  - BLOOD BICARBONATE DECREASED [None]
  - BLOOD LACTIC ACID ABNORMAL [None]
  - BLOOD PH DECREASED [None]
  - BODY TEMPERATURE DECREASED [None]
  - BRAIN OEDEMA [None]
  - CARDIO-RESPIRATORY ARREST [None]
  - CLONUS [None]
  - DRUG INEFFECTIVE [None]
  - ELECTROENCEPHALOGRAM ABNORMAL [None]
  - ENDOTRACHEAL INTUBATION [None]
  - GLASGOW COMA SCALE ABNORMAL [None]
  - GRAND MAL CONVULSION [None]
  - MALAISE [None]
  - MECHANICAL VENTILATION [None]
  - MIOSIS [None]
  - NEUROLOGICAL SYMPTOM [None]
  - NEUROMUSCULAR BLOCKING THERAPY [None]
  - PARTIAL SEIZURES [None]
  - RALES [None]
  - SEDATIVE THERAPY [None]
  - SOMATOSENSORY EVOKED POTENTIALS ABNORMAL [None]
  - TREATMENT NONCOMPLIANCE [None]
